FAERS Safety Report 25157071 (Version 1)
Quarter: 2025Q2

REPORT INFORMATION
  Report Type: Spontaneous
  Country: BE (occurrence: BE)
  Receive Date: 20250403
  Receipt Date: 20250403
  Transmission Date: 20250717
  Serious: Yes (Other)
  Sender: MYLAN
  Company Number: None

PATIENT
  Age: 44 Year
  Sex: Female

DRUGS (12)
  1. CETIRIZINE [Suspect]
     Active Substance: CETIRIZINE HYDROCHLORIDE
     Indication: Product used for unknown indication
     Dosage: 0.5 DOSAGE FORM, QD (IN THE MORNING)
  2. CLARITHROMYCIN [Suspect]
     Active Substance: CLARITHROMYCIN
     Indication: Bronchitis
     Dosage: 2 DOSAGE FORM, QD (DURING THE MEAL, 2 TABLETS AND 1 WITH FOOD 20 DAYS TREATMENT)
     Dates: start: 20250313
  3. OTILONIUM BROMIDE [Suspect]
     Active Substance: OTILONIUM BROMIDE
     Indication: Abdominal pain upper
     Dosage: 1 DOSAGE FORM, QD (30 MINUTES BEFORE MEALS)
  4. ACETAMINOPHEN\TRAMADOL [Suspect]
     Active Substance: ACETAMINOPHEN\TRAMADOL
     Indication: Abdominal pain upper
     Dosage: 0.5 DOSAGE FORM, QD (IN THE EVENING: 1/2 CO PARACETAMOL, TRAMADOL HYDROCHLORIDE)
  5. Enterol [Concomitant]
     Dosage: 1 DOSAGE FORM, QD (IN THE MORNING)
  6. PANTOPRAZOLE SODIUM [Concomitant]
     Active Substance: PANTOPRAZOLE SODIUM
     Dosage: 1 DOSAGE FORM, QD (THE MORNING)
  7. DESOGESTREL [Concomitant]
     Active Substance: DESOGESTREL
     Dosage: 1 DOSAGE FORM, QD (IN THE MORNING)
  8. LISINOPRIL [Concomitant]
     Active Substance: LISINOPRIL
     Dosage: 0.5 DOSAGE FORM, QD (IN THE MORNING)
  9. BISOLVON [Concomitant]
     Active Substance: BROMHEXINE HYDROCHLORIDE
     Dosage: 0.5 DOSAGE FORM, BID (1/2 MORNING AND 1/2 EVENING)
  10. CALCIUM [Concomitant]
     Active Substance: CALCIUM
     Dosage: 2 DOSAGE FORM, QD (2X500 MG)
  11. PRAMIPEXOLE [Concomitant]
     Active Substance: PRAMIPEXOLE
     Dosage: 1 DOSAGE FORM, QD (IN THE MORNING)
  12. FLUTICASONE FUROATE\VILANTEROL TRIFENATATE [Concomitant]
     Active Substance: FLUTICASONE FUROATE\VILANTEROL TRIFENATATE
     Dosage: 1 DOSAGE FORM, QD (IN THE EVENING)

REACTIONS (3)
  - Renal pain [Unknown]
  - Bladder pain [Unknown]
  - Urinary retention [Unknown]

NARRATIVE: CASE EVENT DATE: 20250313
